FAERS Safety Report 14547782 (Version 1)
Quarter: 2018Q1

REPORT INFORMATION
  Report Type: Spontaneous
  Country: BE (occurrence: BE)
  Receive Date: 20180219
  Receipt Date: 20180219
  Transmission Date: 20180509
  Serious: Yes (Other)
  Sender: FDA-Public Use
  Company Number: BE-BAYER-2018-027418

PATIENT
  Age: 44 Year
  Sex: Female

DRUGS (2)
  1. MIRENA [Suspect]
     Active Substance: LEVONORGESTREL
  2. MIRENA [Suspect]
     Active Substance: LEVONORGESTREL
     Dosage: 20 MCG/24HR, CONT
     Route: 015
     Dates: start: 20171115, end: 20171208

REACTIONS (3)
  - Infection [Recovered/Resolved]
  - Pyrexia [Recovered/Resolved]
  - Procedural pain [Recovered/Resolved]

NARRATIVE: CASE EVENT DATE: 2017
